FAERS Safety Report 7045872-X (Version None)
Quarter: 2010Q4

REPORT INFORMATION
  Report Type: 
  Country: None (occurrence: None)
  Receive Date: 20101014
  Receipt Date: 20100930
  Transmission Date: 20110411
  Serious: Yes (Other)
  Sender: FDA-Public Use
  Company Number: PHHY2010JP66549

PATIENT
  Sex: Male

DRUGS (11)
  1. AFINITOR [Suspect]
     Indication: METASTATIC RENAL CELL CARCINOMA
     Dosage: 5 MG, DAILY
     Route: 048
     Dates: start: 20100802, end: 20100830
  2. PURSENNID [Concomitant]
     Indication: METASTATIC RENAL CELL CARCINOMA
     Dosage: 24 MG, UNK
     Route: 048
     Dates: start: 20100816
  3. SUNITINIB MALATE [Concomitant]
     Indication: METASTATIC RENAL CELL CARCINOMA
     Dosage: 50 MG, UNK
     Route: 048
     Dates: start: 20100408, end: 20100528
  4. OXYCONTIN [Concomitant]
     Dosage: UNK
     Route: 048
     Dates: start: 20100802
  5. OXINORM [Concomitant]
     Dosage: UNK
     Route: 048
     Dates: start: 20100802
  6. NAIXAN [Concomitant]
     Dosage: 60 MG, UNK
     Route: 048
     Dates: start: 20100802
  7. DECADRON [Concomitant]
     Dosage: 0.5 MG, UNK
     Route: 048
     Dates: start: 20100802
  8. CYTOTEC [Concomitant]
     Dosage: 300 ?G, UNK
     Route: 048
     Dates: start: 20100802
  9. MAGMITT [Concomitant]
     Dosage: 5 MG, UNK
     Route: 048
     Dates: start: 20100816
  10. OMEPRAL [Concomitant]
     Dosage: 20 MG, UNK
     Route: 048
     Dates: start: 20100802
  11. CALONAL [Concomitant]
     Dosage: 800 MG, UNK
     Route: 048
     Dates: start: 20100802

REACTIONS (2)
  - GAMMA-GLUTAMYLTRANSFERASE INCREASED [None]
  - MALIGNANT NEOPLASM PROGRESSION [None]
